FAERS Safety Report 4865840-3 (Version None)
Quarter: 2005Q4

REPORT INFORMATION
  Report Type: 
  Country: None (occurrence: None)
  Receive Date: 20051220
  Receipt Date: 20051206
  Transmission Date: 20060501
  Serious: Yes (Hospitalization)
  Sender: FDA-Public Use
  Company Number: SUS1-2005-00906

PATIENT
  Age: 38 Year
  Sex: Female

DRUGS (1)
  1. PENTASA [Suspect]
     Indication: COLITIS ULCERATIVE
     Dosage: 500 MG DAILY, ORAL
     Route: 048
     Dates: start: 20050422, end: 20050422

REACTIONS (9)
  - BRONCHOSPASM [None]
  - CHEST DISCOMFORT [None]
  - CONDITION AGGRAVATED [None]
  - DIARRHOEA [None]
  - OEDEMA PERIPHERAL [None]
  - PYREXIA [None]
  - TRANSAMINASES INCREASED [None]
  - URTICARIA [None]
  - URTICARIA LOCALISED [None]
